FAERS Safety Report 6376091-8 (Version None)
Quarter: 2009Q3

REPORT INFORMATION
  Report Type: 
  Country: None (occurrence: None)
  Receive Date: 20090921
  Receipt Date: 20090917
  Transmission Date: 20100115
  Serious: Yes (Hospitalization)
  Sender: FDA-Public Use
  Company Number: 2009SP025790

PATIENT
  Age: 75 Year
  Sex: Female

DRUGS (9)
  1. BETAMETHASONE [Suspect]
     Indication: DRUG USE FOR UNKNOWN INDICATION
     Dosage: 4 MG
     Dates: start: 20080501, end: 20090101
  2. SOLUPRED (PREDNISOLONE SODIUM SULFOBENZOATE) [Suspect]
     Indication: DRUG USE FOR UNKNOWN INDICATION
     Dosage: 40 MG; QD
     Dates: start: 20090101, end: 20090601
  3. LEVOTHYROXINE SODIUM [Concomitant]
  4. AMLOR [Concomitant]
  5. TAHOR [Concomitant]
  6. ATARAX [Concomitant]
  7. CYSTINE B6 [Concomitant]
  8. PROPOFAN [Concomitant]
  9. FUCIDINE CAP [Concomitant]

REACTIONS (17)
  - DERMATITIS [None]
  - ERYTHEMA [None]
  - FLUID RETENTION [None]
  - HYPERNATRAEMIA [None]
  - INCREASED TENDENCY TO BRUISE [None]
  - OEDEMA [None]
  - OEDEMA PERIPHERAL [None]
  - OVERDOSE [None]
  - PHOTOSENSITIVITY REACTION [None]
  - SKIN ATROPHY [None]
  - SKIN DEPIGMENTATION [None]
  - SKIN LESION [None]
  - SKIN MACERATION [None]
  - SPINAL CORD COMPRESSION [None]
  - SUPERINFECTION BACTERIAL [None]
  - TREMOR [None]
  - ULCER [None]
